FAERS Safety Report 5463179-9 (Version None)
Quarter: 2007Q3

REPORT INFORMATION
  Report Type: 
  Country: None (occurrence: None)
  Receive Date: 20070920
  Receipt Date: 20070914
  Transmission Date: 20080115
  Serious: Yes (Hospitalization)
  Sender: FDA-Public Use
  Company Number: A0667646A

PATIENT
  Age: 26 Year
  Sex: Female
  Weight: 67 kg

DRUGS (2)
  1. ZOFRAN [Suspect]
     Indication: HYPEREMESIS GRAVIDARUM
     Dosage: 12MG CONTINUOUS
     Route: 058
  2. TPN [Concomitant]

REACTIONS (4)
  - DRUG EXPOSURE DURING PREGNANCY [None]
  - DRUG INEFFECTIVE [None]
  - HYPEREMESIS GRAVIDARUM [None]
  - OFF LABEL USE [None]
